FAERS Safety Report 4555132-4 (Version None)
Quarter: 2005Q1

REPORT INFORMATION
  Report Type: 
  Country: None (occurrence: None)
  Receive Date: 20050118
  Receipt Date: 20040715
  Transmission Date: 20050727
  Serious: Yes (Hospitalization)
  Sender: FDA-Public Use
  Company Number: US-MERCK-0407USA01296

PATIENT
  Age: 63 Year
  Sex: Male

DRUGS (7)
  1. VIOXX [Suspect]
     Indication: RHEUMATOID ARTHRITIS
     Route: 048
     Dates: start: 20010715, end: 20020717
  2. ZOCOR [Concomitant]
     Route: 048
     Dates: end: 20020701
  3. ZOCOR [Concomitant]
     Route: 048
     Dates: start: 20020701
  4. CLONIDINE [Concomitant]
     Route: 048
     Dates: end: 20020717
  5. TOPROL-XL [Concomitant]
     Route: 048
  6. FLOMAX [Concomitant]
     Route: 048
     Dates: end: 20020717
  7. IBUPROFEN [Concomitant]
     Route: 065
     Dates: start: 20010401

REACTIONS (28)
  - AORTIC VALVE INCOMPETENCE [None]
  - CAROTID ARTERY STENOSIS [None]
  - CEREBRAL ARTERY OCCLUSION [None]
  - CEREBRAL ATROPHY [None]
  - CEREBRAL ISCHAEMIA [None]
  - CEREBROVASCULAR ACCIDENT [None]
  - COUGH [None]
  - DIASTOLIC DYSFUNCTION [None]
  - DILATATION ATRIAL [None]
  - EMOTIONAL DISTRESS [None]
  - HEAT EXHAUSTION [None]
  - INSOMNIA [None]
  - LACUNAR INFARCTION [None]
  - LUNG NEOPLASM [None]
  - MITRAL VALVE CALCIFICATION [None]
  - MITRAL VALVE INCOMPETENCE [None]
  - NOCTURIA [None]
  - NYSTAGMUS [None]
  - PALPITATIONS [None]
  - RHINORRHOEA [None]
  - RIGHT VENTRICULAR SYSTOLIC PRESSURE DECREASED [None]
  - SINUSITIS [None]
  - SUPRAVENTRICULAR EXTRASYSTOLES [None]
  - URINARY INCONTINENCE [None]
  - VENTRICULAR DYSFUNCTION [None]
  - VENTRICULAR EXTRASYSTOLES [None]
  - VENTRICULAR HYPERTROPHY [None]
  - WEIGHT INCREASED [None]
